FAERS Safety Report 17149669 (Version 1)
Quarter: 2019Q4

REPORT INFORMATION
  Report Type: Report from Study
  Country: US (occurrence: US)
  Receive Date: 20191213
  Receipt Date: 20191213
  Transmission Date: 20200122
  Serious: No
  Sender: FDA-Public Use
  Company Number: NVSC2019US006521

PATIENT
  Sex: Male

DRUGS (1)
  1. ENTRESTO [Suspect]
     Active Substance: SACUBITRIL\VALSARTAN
     Indication: CARDIAC FAILURE
     Dosage: 1 DF(24 MG SACUBITRIL AND 26 MG VALSARTAN), BID
     Route: 048
     Dates: start: 20190923, end: 20190926

REACTIONS (2)
  - Headache [Unknown]
  - Feeling abnormal [Unknown]
